FAERS Safety Report 17883975 (Version 1)
Quarter: 2020Q2

REPORT INFORMATION
  Report Type: Spontaneous
  Country: US (occurrence: US)
  Receive Date: 20200610
  Receipt Date: 20200610
  Transmission Date: 20200714
  Serious: No
  Sender: FDA-Public Use
  Company Number: None

PATIENT
  Age: 45 Year
  Sex: Male
  Weight: 83.91 kg

DRUGS (3)
  1. TEGRETOL [Suspect]
     Active Substance: CARBAMAZEPINE
     Indication: PARTIAL SEIZURES
     Route: 048
  2. DEPAKOTE ER [Suspect]
     Active Substance: DIVALPROEX SODIUM
     Indication: PARTIAL SEIZURES
     Route: 048
  3. KEPPRA XR [Concomitant]
     Active Substance: LEVETIRACETAM

REACTIONS (2)
  - Product dispensing error [None]
  - Product substitution issue [None]

NARRATIVE: CASE EVENT DATE: 20200522
